FAERS Safety Report 6248169-0 (Version None)
Quarter: 2009Q2

REPORT INFORMATION
  Report Type: 
  Country: None (occurrence: None)
  Receive Date: 20090624
  Receipt Date: 20090624
  Transmission Date: 20091009
  Serious: Yes (Other)
  Sender: FDA-Public Use
  Company Number: None

PATIENT
  Age: 72 Year
  Sex: Female
  Weight: 64.6 kg

DRUGS (1)
  1. CARMUSTINE [Suspect]
     Indication: ASTROCYTOMA
     Dosage: 134MG PER DAY X 3 IV DRIP
     Route: 041
     Dates: start: 20070305, end: 20070307

REACTIONS (7)
  - CARBON MONOXIDE DIFFUSING CAPACITY DECREASED [None]
  - DYSPNOEA EXERTIONAL [None]
  - HAEMOGLOBIN DECREASED [None]
  - LEUKOPENIA [None]
  - NEUTROPENIA [None]
  - PULMONARY TOXICITY [None]
  - THROMBOCYTOPENIA [None]
